FAERS Safety Report 10736520 (Version 1)
Quarter: 2015Q1

REPORT INFORMATION
  Report Type: Spontaneous
  Country: US (occurrence: None)
  Receive Date: 20150122
  Receipt Date: 20150122
  Transmission Date: 20150721
  Serious: Yes (Hospitalization)
  Sender: FDA-Public Use
  Company Number: None

PATIENT
  Age: 58 Year
  Sex: Female
  Weight: 79.38 kg

DRUGS (2)
  1. BYSTOLIC [Suspect]
     Active Substance: NEBIVOLOL HYDROCHLORIDE
     Indication: HYPERTENSION
     Route: 048
  2. BYSTOLIC [Concomitant]
     Active Substance: NEBIVOLOL HYDROCHLORIDE

REACTIONS (8)
  - Vision blurred [None]
  - Back pain [None]
  - Diarrhoea [None]
  - Dyspnoea [None]
  - Fatigue [None]
  - Cough [None]
  - Chest pain [None]
  - Muscle tightness [None]

NARRATIVE: CASE EVENT DATE: 20150119
